FAERS Safety Report 6874658-1 (Version None)
Quarter: 2010Q3

REPORT INFORMATION
  Report Type: 
  Country: None (occurrence: None)
  Receive Date: 20100722
  Receipt Date: 20100719
  Transmission Date: 20110219
  Serious: Yes (Other)
  Sender: FDA-Public Use
  Company Number: A0860551A

PATIENT
  Age: 73 Year
  Sex: Female

DRUGS (2)
  1. ASPIRIN + CAFFEINE + SALICYLAMIDE POWDER (ASPIRIN+CAFFEINE+SALICYLA) [Suspect]
     Indication: PAIN
     Dosage: ORAL
     Route: 048
     Dates: start: 20100519, end: 20100519
  2. SIMVASTATIN [Concomitant]

REACTIONS (7)
  - ABDOMINAL PAIN UPPER [None]
  - BLOODY DISCHARGE [None]
  - DIARRHOEA [None]
  - HAEMATOCHEZIA [None]
  - MUCOUS STOOLS [None]
  - NAUSEA [None]
  - THROMBOSIS [None]
